FAERS Safety Report 23257272 (Version 1)
Quarter: 2023Q4

REPORT INFORMATION
  Report Type: Spontaneous
  Country: GB (occurrence: None)
  Receive Date: 20231204
  Receipt Date: 20231204
  Transmission Date: 20240110
  Serious: Yes (Hospitalization, Other)
  Sender: FDA-Public Use
  Company Number: 2023A268075

PATIENT
  Age: 84 Year
  Sex: Male
  Weight: 71 kg

DRUGS (11)
  1. DAPAGLIFLOZIN [Suspect]
     Active Substance: DAPAGLIFLOZIN
     Dosage: 1
     Dates: start: 20230830
  2. CALCIUM CARBONATE\CHOLECALCIFEROL [Concomitant]
     Active Substance: CALCIUM CARBONATE\CHOLECALCIFEROL
     Dosage: 1
     Dates: start: 20221101
  3. ASPIRIN [Concomitant]
     Active Substance: ASPIRIN
     Dosage: 1
     Dates: start: 20221101
  4. COSOPT [Concomitant]
     Active Substance: DORZOLAMIDE HYDROCHLORIDE\TIMOLOL MALEATE
     Dosage: INSTILL ONE DROP INTO BOTH EYES TWICE DAILY,2
     Dates: start: 20231107
  5. DORZOLAMIDE [Concomitant]
     Active Substance: DORZOLAMIDE
     Dosage: ONE DROP TWICE DAILY BOTH EYES 2
     Dates: start: 20221101
  6. GLICLAZIDE [Concomitant]
     Active Substance: GLICLAZIDE
     Dosage: 2
     Dates: start: 20221101
  7. EMPAGLIFLOZIN\LINAGLIPTIN [Concomitant]
     Active Substance: EMPAGLIFLOZIN\LINAGLIPTIN
     Dosage: 1
     Dates: start: 20230524, end: 20230901
  8. METFORMIN [Concomitant]
     Active Substance: METFORMIN HYDROCHLORIDE
     Dosage: WITH MEAL 2
     Dates: start: 20221101
  9. PREDNISOLONE [Concomitant]
     Active Substance: PREDNISOLONE
     Dosage: 1
     Dates: start: 20230303
  10. SIMVASTATIN [Concomitant]
     Active Substance: SIMVASTATIN
     Dosage: AT NIGHT 1
     Dates: start: 20221101
  11. TACROLIMUS [Concomitant]
     Active Substance: TACROLIMUS
     Dosage: APPLY TWICE DAILY UNTIL CLEARS, STOP AFTER 2 WE...1
     Route: 061
     Dates: start: 20230328, end: 20230901

REACTIONS (6)
  - Vomiting [Unknown]
  - Diarrhoea [Unknown]
  - Respiratory rate increased [Unknown]
  - Blood glucose increased [Unknown]
  - Dehydration [Unknown]
  - Diabetic ketoacidosis [Recovering/Resolving]

NARRATIVE: CASE EVENT DATE: 20231101
